FAERS Safety Report 5524059-3 (Version None)
Quarter: 2007Q4

REPORT INFORMATION
  Report Type: 
  Country: None (occurrence: None)
  Receive Date: 20071121
  Receipt Date: 20071113
  Transmission Date: 20080405
  Serious: Yes (Other)
  Sender: FDA-Public Use
  Company Number: GB-BOEHRINGER INGELHEIM PHARMACEUTICALS, INC.-2007-BP-24761YA

PATIENT
  Age: 64 Year
  Sex: Male
  Weight: 61 kg

DRUGS (8)
  1. TAMSULOSIN HCL [Suspect]
     Indication: PROSTATISM
     Route: 048
     Dates: start: 20070704, end: 20070910
  2. AMLODIPINE [Concomitant]
     Route: 065
     Dates: start: 20070830
  3. ASPIRIN [Concomitant]
     Route: 065
  4. ATORVASTATIN CALCIUM [Concomitant]
     Route: 065
  5. CLOPIDOGREL [Concomitant]
     Route: 065
     Dates: start: 20070616
  6. LANSOPRAZOLE [Concomitant]
     Route: 065
  7. NEBIVOLOL [Concomitant]
     Route: 065
  8. OMACOR [Concomitant]
     Route: 065

REACTIONS (1)
  - ANGINA PECTORIS [None]
